FAERS Safety Report 5993565-X (Version None)
Quarter: 2008Q4

REPORT INFORMATION
  Report Type: 
  Country: None (occurrence: None)
  Receive Date: 20081212
  Receipt Date: 20081204
  Transmission Date: 20090506
  Serious: Yes (Hospitalization, Other)
  Sender: FDA-Public Use
  Company Number: PHBS2008DE06587

PATIENT
  Age: 53 Year
  Sex: Male

DRUGS (5)
  1. CYCLOSPORINE [Suspect]
     Indication: RENAL TRANSPLANT
  2. SIROLIMUS [Suspect]
     Indication: RENAL TRANSPLANT
  3. AZATHIOPRINE [Suspect]
     Indication: RENAL TRANSPLANT
  4. STEROIDS NOS [Suspect]
     Indication: RENAL TRANSPLANT
  5. MYCOPHENOLATE MOFETIL [Suspect]
     Indication: RENAL TRANSPLANT

REACTIONS (9)
  - ASTHENIA [None]
  - CHLAMYDIAL INFECTION [None]
  - COUGH [None]
  - DYSPNOEA [None]
  - LUNG INFILTRATION [None]
  - NEPHROPATHY TOXIC [None]
  - PRODUCTIVE COUGH [None]
  - PULMONARY FIBROSIS [None]
  - SPUTUM ABNORMAL [None]
